FAERS Safety Report 5663511-7 (Version None)
Quarter: 2008Q1

REPORT INFORMATION
  Report Type: 
  Country: None (occurrence: None)
  Receive Date: 20080313
  Receipt Date: 20080306
  Transmission Date: 20080703
  Serious: No
  Sender: FDA-Public Use
  Company Number: NL-BAXTER-2008BH000444

PATIENT
  Age: 76 Year
  Sex: Female
  Weight: 87 kg

DRUGS (14)
  1. TISSUCOL/TISSEEL DUO STIM3 [Suspect]
     Indication: MASTECTOMY
     Route: 065
     Dates: start: 20070920, end: 20070920
  2. TISSUCOL/TISSEEL DUO STIM3 [Suspect]
     Indication: LYMPHADENECTOMY
     Route: 065
     Dates: start: 20070920, end: 20070920
  3. ARTHROTEC [Concomitant]
     Route: 048
  4. COZAAR [Concomitant]
     Route: 048
  5. LANOXIN [Concomitant]
     Route: 048
  6. METFORMIN [Concomitant]
     Route: 048
  7. METHYLDOPA [Concomitant]
     Route: 048
  8. METOPROLOL TARTRATE [Concomitant]
     Route: 048
  9. OMEPRAZOLE [Concomitant]
     Route: 048
  10. PRAVASTATIN [Concomitant]
     Route: 048
  11. VENORUTON [Concomitant]
     Route: 048
  12. ACENOCOUMAROL [Concomitant]
  13. INSULATARD [Concomitant]
  14. BUTOCONAZOLE [Concomitant]

REACTIONS (5)
  - HAEMATOMA [None]
  - IMPAIRED HEALING [None]
  - NECROSIS [None]
  - SEROMA [None]
  - WOUND INFECTION [None]
